FAERS Safety Report 8020418-8 (Version None)
Quarter: 2012Q1

REPORT INFORMATION
  Report Type: 
  Country: None (occurrence: None)
  Receive Date: 20120103
  Receipt Date: 20111230
  Transmission Date: 20120608
  Serious: Yes (Hospitalization)
  Sender: FDA-Public Use
  Company Number: US-B.I. PHARMACEUTICALS,INC./RIDGEFIELD-2012-BP-00002BP

PATIENT
  Sex: Female

DRUGS (8)
  1. MULTI-VITAMIN [Concomitant]
     Indication: SUPPLEMENTATION THERAPY
  2. LASIX [Concomitant]
  3. COREG [Concomitant]
  4. POTASSIUM [Concomitant]
     Indication: SUPPLEMENTATION THERAPY
  5. PRADAXA [Suspect]
     Indication: ATRIAL FIBRILLATION
     Dosage: 300 MG
     Route: 048
     Dates: start: 20110801, end: 20111101
  6. CALCIUM ACETATE [Concomitant]
     Indication: SUPPLEMENTATION THERAPY
  7. LEXAPRO [Concomitant]
     Indication: DEPRESSION
  8. ZETIA [Concomitant]

REACTIONS (1)
  - RENAL FAILURE [None]
